FAERS Safety Report 6856277-6 (Version None)
Quarter: 2010Q3

REPORT INFORMATION
  Report Type: 
  Country: None (occurrence: None)
  Receive Date: 20100719
  Receipt Date: 20100709
  Transmission Date: 20110219
  Serious: Yes (Hospitalization)
  Sender: FDA-Public Use
  Company Number: PHHY2010SE36087

PATIENT
  Sex: Female

DRUGS (2)
  1. RITALIN [Suspect]
     Indication: ATTENTION DEFICIT/HYPERACTIVITY DISORDER
     Dosage: 60 MG/DAY
     Dates: start: 20070101
  2. RITALIN [Suspect]
     Dosage: 60 MG, QD
     Dates: start: 20100401, end: 20100526

REACTIONS (2)
  - APLASTIC ANAEMIA [None]
  - PANCYTOPENIA [None]
